FAERS Safety Report 9124830 (Version 1)
Quarter: 2013Q1

REPORT INFORMATION
  Report Type: Report from Study
  Country: AT (occurrence: AT)
  Receive Date: 20130117
  Receipt Date: 20130117
  Transmission Date: 20140127
  Serious: Yes (Hospitalization)
  Sender: FDA-Public Use
  Company Number: PHHO2013AT000898

PATIENT
  Age: 71 Year
  Sex: Male
  Weight: 101 kg

DRUGS (7)
  1. AMN107 [Suspect]
     Indication: CHRONIC MYELOID LEUKAEMIA
     Dosage: 300 MG, BID
     Dates: start: 20110119
  2. SORTIS [Concomitant]
     Indication: HYPERLIPIDAEMIA
     Dosage: 40 MG, UNK
     Route: 048
  3. SELOKEN PLUS [Concomitant]
     Indication: HYPERTENSION
     Dosage: 1 DF, UNK
     Dates: start: 20101201
  4. BLOPRESS [Concomitant]
     Indication: HYPERTENSION
     Dosage: 16 MG, UNK
     Route: 048
  5. DOXAZOSIN [Concomitant]
     Indication: HYPERTENSION
     Dosage: 0.5 DF, UNK
  6. AMLODIPIN [Concomitant]
     Indication: HYPERTENSION
     Dosage: 5 MG, UNK
     Route: 048
     Dates: start: 20120118
  7. LENDORM [Concomitant]
     Indication: SLEEP DISORDER
     Dosage: 25 MG, INTERMITTENT
     Dates: start: 20121201

REACTIONS (1)
  - Angina pectoris [Recovered/Resolved]
